FAERS Safety Report 9206161 (Version 1)
Quarter: 2013Q2

REPORT INFORMATION
  Report Type: Spontaneous
  Country: US (occurrence: None)
  Receive Date: 20130401
  Receipt Date: 20130401
  Transmission Date: 20140414
  Serious: Yes (Hospitalization, Disabling)
  Sender: FDA-Public Use
  Company Number: None

PATIENT
  Age: 52 Year
  Sex: Female
  Weight: 47.63 kg

DRUGS (1)
  1. CYMBALTA 20 MG LILLY [Suspect]
     Indication: MIGRAINE
     Dosage: 1 CAPSULE DAILY PO
     Dates: start: 20130201, end: 20130207

REACTIONS (6)
  - Hypoaesthesia [None]
  - Asthenia [None]
  - Balance disorder [None]
  - Myelitis transverse [None]
  - Mood altered [None]
  - Burning sensation [None]
